FAERS Safety Report 5845756-6 (Version None)
Quarter: 2008Q3

REPORT INFORMATION
  Report Type: 
  Country: None (occurrence: None)
  Receive Date: 20080814
  Receipt Date: 20080805
  Transmission Date: 20090109
  Serious: Yes (Death, Hospitalization)
  Sender: FDA-Public Use
  Company Number: BR-ABBOTT-08P-020-0444459-00

PATIENT
  Sex: Male
  Weight: 53 kg

DRUGS (4)
  1. RITONAVIR SOFT GELATIN CAPSULES [Suspect]
     Indication: HIV INFECTION
     Route: 048
     Dates: start: 20080303, end: 20080318
  2. TIPRANAVIR [Concomitant]
     Indication: HIV INFECTION
     Route: 048
     Dates: start: 20080303, end: 20080318
  3. ABACAVIR [Concomitant]
     Indication: HIV INFECTION
     Route: 048
     Dates: start: 20080303, end: 20080318
  4. DIDANOSINE [Concomitant]
     Indication: HIV INFECTION
     Route: 048
     Dates: start: 20080303, end: 20080318

REACTIONS (5)
  - ABDOMINAL PAIN UPPER [None]
  - CARDIO-RESPIRATORY ARREST [None]
  - DIARRHOEA [None]
  - FAECES DISCOLOURED [None]
  - VOMITING [None]
